FAERS Safety Report 7965926-0 (Version None)
Quarter: 2011Q4

REPORT INFORMATION
  Report Type: 
  Country: None (occurrence: None)
  Receive Date: 20111208
  Receipt Date: 20111130
  Transmission Date: 20120403
  Serious: Yes (Other)
  Sender: FDA-Public Use
  Company Number: KR-GLAXOSMITHKLINE-B0767615A

PATIENT
  Age: 68 Year
  Sex: Male

DRUGS (3)
  1. AVODART [Suspect]
     Indication: LOWER URINARY TRACT SYMPTOMS
     Route: 065
     Dates: start: 20070101
  2. TAMSULOSIN HCL [Concomitant]
     Indication: LOWER URINARY TRACT SYMPTOMS
     Route: 065
  3. ALFUZOSIN HCL [Concomitant]
     Indication: LOWER URINARY TRACT SYMPTOMS
     Route: 065
     Dates: start: 20070101

REACTIONS (3)
  - PROSTATIC SPECIFIC ANTIGEN INCREASED [None]
  - PROSTATE CANCER [None]
  - PROSTATOMEGALY [None]
